FAERS Safety Report 10385917 (Version 2)
Quarter: 2014Q4

REPORT INFORMATION
  Report Type: Report from Study
  Country: JP (occurrence: JP)
  Receive Date: 20140814
  Receipt Date: 20141017
  Transmission Date: 20150528
  Serious: Yes (Other)
  Sender: FDA-Public Use
  Company Number: JP-MERCK-1408JPN008121

PATIENT
  Age: 63 Year
  Sex: Male
  Weight: 67 kg

DRUGS (15)
  1. RIBAVIRIN. [Suspect]
     Active Substance: RIBAVIRIN
     Indication: CHRONIC HEPATITIS C
     Dosage: 800 MG, 1 IN 1 DAY, FORMULATION: UNSPECIFIED
     Route: 048
     Dates: start: 20140402, end: 20140422
  2. PEGINTRON [Suspect]
     Active Substance: PEGINTERFERON ALFA-2B
     Indication: CHRONIC HEPATITIS C
     Dosage: 1.5 UG/KG, 1 IN 1 WEEK
     Route: 058
     Dates: start: 20140402
  3. RIBAVIRIN. [Suspect]
     Active Substance: RIBAVIRIN
     Dosage: 400 MG, 1 IN 1 DAY,FORMULATION: UNSPECIFIED
     Route: 048
     Dates: start: 20140430
  4. NORSPAN (BUPRENORPHINE) [Concomitant]
     Indication: SPINAL COLUMN STENOSIS
     Dosage: 5 MG, QW, FORMULATION: TAPE
     Route: 062
     Dates: start: 20140422
  5. ZOLPIDEM TARTRATE. [Concomitant]
     Active Substance: ZOLPIDEM TARTRATE
     Indication: PROPHYLAXIS
     Dosage: 10 MG, 1 IN 1 AS NECESSARY
     Route: 048
  6. LOXONIN [Concomitant]
     Active Substance: LOXOPROFEN SODIUM
     Dosage: 60 MG, 1 IN 1 AS NECESSARY
     Route: 048
     Dates: start: 20140610
  7. SIMEPREVIR [Suspect]
     Active Substance: SIMEPREVIR
     Indication: CHRONIC HEPATITIS C
     Dosage: 100 MG, 1 IN 1 DAY
     Route: 048
     Dates: start: 20140402, end: 20140625
  8. LYRICA [Concomitant]
     Active Substance: PREGABALIN
     Indication: SPINAL COLUMN STENOSIS
     Dosage: 300 MG, 1 IN 1 DAY
  9. RIBAVIRIN. [Suspect]
     Active Substance: RIBAVIRIN
     Dosage: 600 MG, 1 IN 1 DAY,FORMULATION: UNSPECIFIED
     Route: 048
     Dates: start: 20140423, end: 20140429
  10. ALLOPURINOL. [Concomitant]
     Active Substance: ALLOPURINOL
     Indication: HYPERURICAEMIA
     Dosage: 100 MG, 1 IN 1 DAY
     Route: 048
  11. LOXONIN [Concomitant]
     Active Substance: LOXOPROFEN SODIUM
     Indication: SPINAL COLUMN STENOSIS
     Dosage: 60 MG, 1 IN 1 DAY
     Route: 048
  12. REBAMIPIDE [Concomitant]
     Active Substance: REBAMIPIDE
     Indication: PROPHYLAXIS
     Dosage: 100 MG, 1 IN 1 DAY
     Route: 048
  13. MOHRUS [Concomitant]
     Active Substance: KETOPROFEN
     Indication: SPINAL COLUMN STENOSIS
     Dosage: 40 MG, 1 IN 1 DAY, FORMULATION: TAPE
     Route: 062
  14. LOXONIN [Concomitant]
     Active Substance: LOXOPROFEN SODIUM
     Dosage: 60 MG, 1 IN 1 DAY
     Route: 048
     Dates: start: 20140624
  15. REBAMIPIDE [Concomitant]
     Active Substance: REBAMIPIDE
     Dosage: 100 MG, 1 IN 1 AS NECESSARY
     Route: 048
     Dates: start: 20140610

REACTIONS (10)
  - Anaemia [Not Recovered/Not Resolved]
  - Constipation [Recovering/Resolving]
  - Alanine aminotransferase increased [Recovering/Resolving]
  - Blood bilirubin increased [Recovering/Resolving]
  - Malaise [Unknown]
  - Dyspnoea [Recovering/Resolving]
  - Nasopharyngitis [Recovered/Resolved]
  - Palpitations [Recovering/Resolving]
  - Aspartate aminotransferase increased [Recovering/Resolving]
  - Diarrhoea [Recovering/Resolving]

NARRATIVE: CASE EVENT DATE: 20140409
